FAERS Safety Report 8781830 (Version 1)
Quarter: 2012Q4

REPORT INFORMATION
  Report Type: Report from Study
  Country: BR (occurrence: BR)
  Receive Date: 20120913
  Receipt Date: 20120913
  Transmission Date: 20130627
  Serious: Yes (Other)
  Sender: FDA-Public Use
  Company Number: BR-ASTRAZENECA-2012SE70210

PATIENT
  Age: 22403 Day
  Sex: Male

DRUGS (7)
  1. AZD6140 [Suspect]
     Indication: CORONARY ARTERY DISEASE
     Route: 048
     Dates: start: 20120110, end: 20120810
  2. BUSCOPAN COMPOUND [Concomitant]
     Indication: DYSURIA
     Route: 048
     Dates: start: 20120627
  3. LOSARTAN [Concomitant]
     Indication: HYPERTENSION
     Route: 048
     Dates: start: 20120516
  4. OMEPRAZOLE [Concomitant]
     Indication: GASTRITIS
     Route: 048
  5. CARDIZEM [Concomitant]
     Indication: HYPERTENSION
     Route: 048
     Dates: start: 20120516
  6. SINVASTATIN [Concomitant]
     Indication: DYSLIPIDAEMIA
     Route: 048
  7. ASA [Concomitant]
     Route: 048
     Dates: start: 20120110, end: 20120817

REACTIONS (1)
  - Bladder neoplasm [Not Recovered/Not Resolved]
